FAERS Safety Report 13177174 (Version 1)
Quarter: 2017Q1

REPORT INFORMATION
  Report Type: Report from Study
  Country: US (occurrence: US)
  Receive Date: 20170201
  Receipt Date: 20170201
  Transmission Date: 20170428
  Serious: No
  Sender: FDA-Public Use
  Company Number: US-EXELIXIS-CABO-16007321

PATIENT
  Sex: Male

DRUGS (8)
  1. TRADJENTA [Concomitant]
     Active Substance: LINAGLIPTIN
  2. COMETRIQ [Suspect]
     Active Substance: CABOZANTINIB S-MALATE
     Indication: RENAL CANCER
     Dosage: 60 MG, QD
     Route: 048
     Dates: start: 20160917
  3. ISOSORBIDE. [Concomitant]
     Active Substance: ISOSORBIDE
  4. VITAMIN B12 [Concomitant]
     Active Substance: CYANOCOBALAMIN
  5. METOPROLOL. [Concomitant]
     Active Substance: METOPROLOL
  6. IRON [Concomitant]
     Active Substance: IRON
  7. BRILINTA [Concomitant]
     Active Substance: TICAGRELOR
  8. LEVOTHYROXINE. [Concomitant]
     Active Substance: LEVOTHYROXINE

REACTIONS (9)
  - Diarrhoea [Not Recovered/Not Resolved]
  - Cheilitis [Unknown]
  - Oral pain [Unknown]
  - Pain in extremity [Unknown]
  - Dry skin [Not Recovered/Not Resolved]
  - Skin ulcer [Unknown]
  - Alopecia [Unknown]
  - Blister [Unknown]
  - Weight decreased [Recovering/Resolving]
